FAERS Safety Report 5269842-7 (Version None)
Quarter: 2007Q1

REPORT INFORMATION
  Report Type: 
  Country: None (occurrence: None)
  Receive Date: 20070314
  Receipt Date: 20070302
  Transmission Date: 20070707
  Serious: No
  Sender: FDA-Public Use
  Company Number: 2007-155356-NL

PATIENT
  Age: 54 Year
  Sex: Female

DRUGS (4)
  1. MIRTAZAPINE [Suspect]
     Indication: DEPRESSION
     Dosage: 30 MG QD ORAL
     Route: 048
     Dates: start: 20061215, end: 20061215
  2. NEBIVOLOL HYDROCHLORIDE [Concomitant]
  3. CHONDROITIN SULFATE SODIUM [Concomitant]
  4. ESTRADIOL [Concomitant]

REACTIONS (5)
  - AGITATION [None]
  - DEPERSONALISATION [None]
  - DEREALISATION [None]
  - DIZZINESS [None]
  - FEELING ABNORMAL [None]
